FAERS Safety Report 4783866-5 (Version None)
Quarter: 2005Q3

REPORT INFORMATION
  Report Type: 
  Country: None (occurrence: None)
  Receive Date: 20050929
  Receipt Date: 20020516
  Transmission Date: 20060218
  Serious: Yes (Hospitalization)
  Sender: FDA-Public Use
  Company Number: US-MERCK-0205USA02120

PATIENT
  Age: 65 Year
  Sex: Male
  Weight: 85 kg

DRUGS (7)
  1. VIOXX [Suspect]
     Indication: SPONDYLITIS
     Route: 048
     Dates: start: 20000101, end: 20010806
  2. VIOXX [Suspect]
     Indication: NECK PAIN
     Route: 048
     Dates: start: 20000101, end: 20010806
  3. [THERAPY UNSPECIFIED] [Concomitant]
     Route: 065
  4. SOMA [Concomitant]
     Route: 065
  5. VICODIN [Concomitant]
     Route: 065
  6. ULTRAM [Concomitant]
     Route: 065
  7. CELEBREX [Concomitant]
     Route: 065

REACTIONS (19)
  - AORTIC VALVE INCOMPETENCE [None]
  - ARTERIAL DISORDER [None]
  - BLOOD PRESSURE INCREASED [None]
  - BUNDLE BRANCH BLOCK RIGHT [None]
  - CATARACT NUCLEAR [None]
  - CORONARY ARTERY DISEASE [None]
  - CORONARY ARTERY OCCLUSION [None]
  - DERMAL CYST [None]
  - EMOTIONAL DISTRESS [None]
  - ERECTILE DYSFUNCTION [None]
  - HYPERSENSITIVITY [None]
  - INGUINAL HERNIA [None]
  - INJURY [None]
  - MACULAR DEGENERATION [None]
  - MITRAL VALVE INCOMPETENCE [None]
  - MUSCLE TIGHTNESS [None]
  - MYOCARDIAL INFARCTION [None]
  - PNEUMONITIS [None]
  - PROSTATIC SPECIFIC ANTIGEN INCREASED [None]
